FAERS Safety Report 9228087 (Version 2)
Quarter: 2013Q2

REPORT INFORMATION
  Report Type: Report from Study
  Country: US (occurrence: US)
  Receive Date: 20130412
  Receipt Date: 20130516
  Transmission Date: 20140414
  Serious: Yes (Death)
  Sender: FDA-Public Use
  Company Number: US-ROCHE-1208936

PATIENT
  Age: 2 Year
  Sex: Female

DRUGS (2)
  1. ALTEPLASE [Suspect]
     Indication: VENA CAVA THROMBOSIS
     Dosage: 0.03 MG/KG/H
     Route: 042
  2. HEPARIN [Suspect]
     Indication: VENA CAVA THROMBOSIS
     Route: 042

REACTIONS (1)
  - Death [Fatal]
